FAERS Safety Report 17549275 (Version 1)
Quarter: 2020Q1

REPORT INFORMATION
  Report Type: Spontaneous
  Country: US (occurrence: US)
  Receive Date: 20200317
  Receipt Date: 20200317
  Transmission Date: 20200409
  Serious: Yes (Death)
  Sender: FDA-Public Use
  Company Number: US-EMCURE PHARMACEUTICALS LTD-2020-EPL-000271

PATIENT
  Age: 34 Year
  Sex: Male

DRUGS (5)
  1. FENTANYL. [Interacting]
     Active Substance: FENTANYL
  2. ACETYLFENTANYL [Interacting]
     Active Substance: ACETYLFENTANYL
  3. HEROIN [Interacting]
     Active Substance: DIAMORPHINE
  4. ALPRAZOLAM. [Suspect]
     Active Substance: ALPRAZOLAM
     Dosage: UNK
  5. 6-MONOACETYLMORPHINE [Interacting]
     Active Substance: 6-ACETYLMORPHINE

REACTIONS (2)
  - Potentiating drug interaction [Fatal]
  - Toxicity to various agents [Fatal]
